FAERS Safety Report 6415779-7 (Version None)
Quarter: 2009Q4

REPORT INFORMATION
  Report Type: 
  Country: None (occurrence: None)
  Receive Date: 20091022
  Receipt Date: 20091015
  Transmission Date: 20100525
  Serious: Yes (Other)
  Sender: FDA-Public Use
  Company Number: 2009JP006312

PATIENT
  Age: 10 Year
  Sex: Male

DRUGS (1)
  1. PROGRAF [Suspect]
     Dosage: 3 MG, /D, ORAL
     Route: 048
     Dates: start: 20090701, end: 20091001

REACTIONS (4)
  - ATAXIA [None]
  - DYSARTHRIA [None]
  - FACIAL PALSY [None]
  - TREMOR [None]
